FAERS Safety Report 5706369-X (Version None)
Quarter: 2008Q2

REPORT INFORMATION
  Report Type: 
  Country: None (occurrence: None)
  Receive Date: 20080414
  Receipt Date: 20080408
  Transmission Date: 20081010
  Serious: Yes (Hospitalization)
  Sender: FDA-Public Use
  Company Number: DAV-AE-PTU-08-001

PATIENT
  Age: 79 Year
  Sex: Male

DRUGS (6)
  1. PROPYLTHIOURACIL [Suspect]
     Indication: HYPERTHYROIDISM
  2. TAXOTERE [Suspect]
     Indication: PROSTATE CANCER
     Dosage: CYC IV
     Route: 042
     Dates: start: 20071101
  3. TAXOTERE [Suspect]
     Indication: PROSTATE CANCER
     Dosage: CYC IV
     Route: 042
     Dates: start: 20071201
  4. TAXOTERE [Suspect]
     Indication: PROSTATE CANCER
     Dosage: CYC IV
     Route: 042
     Dates: start: 20080110
  5. AMIODARONE HCL [Concomitant]
  6. OTHERS [Concomitant]

REACTIONS (5)
  - BLOOD CREATININE INCREASED [None]
  - DRUG INTERACTION [None]
  - FEBRILE NEUTROPENIA [None]
  - MUCOSAL INFLAMMATION [None]
  - OEDEMA [None]
